FAERS Safety Report 10043348 (Version 1)
Quarter: 2014Q1

REPORT INFORMATION
  Report Type: Spontaneous
  Country: US (occurrence: None)
  Receive Date: 20140327
  Receipt Date: 20140327
  Transmission Date: 20141002
  Serious: Yes (Other)
  Sender: FDA-Public Use
  Company Number: None

PATIENT
  Age: 59 Year
  Sex: Female
  Weight: 63.5 kg

DRUGS (1)
  1. GEODON [Suspect]
     Indication: BIPOLAR DISORDER
     Route: 048
     Dates: start: 20090326, end: 20140318

REACTIONS (3)
  - Heart rate irregular [None]
  - Parkinson^s disease [None]
  - Electrocardiogram QT prolonged [None]
